FAERS Safety Report 4457128-X (Version None)
Quarter: 2004Q3

REPORT INFORMATION
  Report Type: 
  Country: None (occurrence: None)
  Receive Date: 20040921
  Receipt Date: 20040908
  Transmission Date: 20050211
  Serious: Yes (Death)
  Sender: FDA-Public Use
  Company Number: 04P-163-0272673-00

PATIENT
  Age: 85 Year
  Sex: Male

DRUGS (5)
  1. HUMIRA [Suspect]
     Indication: RHEUMATOID ARTHRITIS
     Dosage: SEE IMAGE, INTRAVENOUS
     Route: 042
     Dates: start: 20030401, end: 20030901
  2. HUMIRA [Suspect]
     Indication: RHEUMATOID ARTHRITIS
     Dosage: SEE IMAGE, INTRAVENOUS
     Route: 042
     Dates: start: 20030901, end: 20040101
  3. HUMIRA [Suspect]
     Indication: RHEUMATOID ARTHRITIS
     Dosage: SEE IMAGE, INTRAVENOUS
     Route: 042
     Dates: start: 20040201, end: 20040629
  4. METHOTREXATE [Concomitant]
  5. LEFLUNOMIDE [Concomitant]

REACTIONS (1)
  - PULMONARY FIBROSIS [None]
